FAERS Safety Report 7269639-2 (Version None)
Quarter: 2011Q1

REPORT INFORMATION
  Report Type: 
  Country: None (occurrence: None)
  Receive Date: 20110124
  Receipt Date: 20110103
  Transmission Date: 20110831
  Serious: No
  Sender: FDA-Public Use
  Company Number: 2011-00002

PATIENT
  Age: 73 Year
  Sex: Female
  Weight: 63.5036 kg

DRUGS (4)
  1. MICARDIS [Concomitant]
  2. PRAVASTATIN SODIUM [Concomitant]
  3. PREVACID [Concomitant]
  4. ZICAM COLD REMEDY GEL SWABS [Suspect]
     Dosage: SPORADIC USE

REACTIONS (1)
  - ANOSMIA [None]
